FAERS Safety Report 7322017-X (Version None)
Quarter: 2011Q1

REPORT INFORMATION
  Report Type: 
  Country: None (occurrence: None)
  Receive Date: 20110216
  Receipt Date: 20110208
  Transmission Date: 20110831
  Serious: Yes (Hospitalization)
  Sender: FDA-Public Use
  Company Number: 2010EN000356

PATIENT
  Age: 13 Year
  Sex: Female
  Weight: 44.6 kg

DRUGS (24)
  1. METHOTREXATE [Suspect]
     Indication: ACUTE LYMPHOCYTIC LEUKAEMIA
     Dosage: (15 MG; QW; INTH) (60 MG; QW; INTH)
     Route: 037
     Dates: start: 20101119, end: 20101119
  2. METHOTREXATE [Suspect]
     Indication: ACUTE LYMPHOCYTIC LEUKAEMIA
     Dosage: (15 MG; QW; INTH) (60 MG; QW; INTH)
     Route: 037
     Dates: start: 20101220, end: 20110110
  3. VINCRISTINE [Suspect]
     Indication: ACUTE LYMPHOCYTIC LEUKAEMIA
     Dosage: (6 MG; QW; IV) (4MG; QW; IV)
     Route: 042
     Dates: start: 20101220, end: 20110110
  4. VINCRISTINE [Suspect]
     Indication: ACUTE LYMPHOCYTIC LEUKAEMIA
     Dosage: (6 MG; QW; IV) (4MG; QW; IV)
     Route: 042
     Dates: start: 20101112, end: 20101126
  5. CYTARABINE [Concomitant]
  6. MORPHINE [Concomitant]
  7. ALUMINUM HYDROXIDE GEL [Concomitant]
  8. CHLORHEXIDINE GLUCONATE [Concomitant]
  9. METOCLOPRAMIDE HCL [Concomitant]
  10. CYCLOPHOSPHAMIDE [Suspect]
     Indication: ACUTE LYMPHOCYTIC LEUKAEMIA
     Dosage: 1350 MG;X1;IV
     Route: 042
     Dates: start: 20101220, end: 20101220
  11. MERCAPTOPURINE [Suspect]
     Indication: ACUTE LYMPHOCYTIC LEUKAEMIA
     Dosage: 1150 MG;QD;PO
     Route: 048
     Dates: start: 20101220, end: 20110102
  12. MIRALAX [Concomitant]
  13. ZOFRAN [Concomitant]
  14. ONCASPAR [Suspect]
     Indication: ACUTE LYMPHOCYTIC LEUKAEMIA
     Dosage: 3375 IU; X1; IV
     Route: 042
     Dates: start: 20110103, end: 20110103
  15. DIPHENHYDRAMINE [Concomitant]
  16. PREDNISONE [Concomitant]
  17. BACTRIM [Concomitant]
  18. LORAZEPAM [Concomitant]
  19. EZN-2285 (SC-PEG E. COLI L-ASPARAGINASE) [Suspect]
     Indication: ACUTE LYMPHOCYTIC LEUKAEMIA
     Dosage: 2877 IU; X1; IV
     Route: 042
     Dates: start: 20101115, end: 20101115
  20. DAUNORUBICIN [Suspect]
     Indication: ACUTE LYMPHOCYTIC LEUKAEMIA
     Dosage: 102 MG; QW; IV
     Route: 042
     Dates: start: 20101112, end: 20101126
  21. CEFEPIME [Concomitant]
  22. COLACE [Concomitant]
  23. RANITIDINE [Concomitant]
  24. CYTARABINE [Concomitant]

REACTIONS (10)
  - BACK PAIN [None]
  - NEUTROPENIA [None]
  - NAUSEA [None]
  - RHINORRHOEA [None]
  - HYPERBILIRUBINAEMIA [None]
  - BLOOD PRESSURE INCREASED [None]
  - DIZZINESS [None]
  - VISION BLURRED [None]
  - HEADACHE [None]
  - PYREXIA [None]
